FAERS Safety Report 4979051-4 (Version None)
Quarter: 2006Q2

REPORT INFORMATION
  Report Type: 
  Country: None (occurrence: None)
  Receive Date: 20060417
  Receipt Date: 20060403
  Transmission Date: 20061013
  Serious: Yes (Other)
  Sender: FDA-Public Use
  Company Number: PHNU2006DE01561

PATIENT
  Age: 78 Year
  Sex: Female

DRUGS (1)
  1. VISUDYNE [Suspect]
     Indication: MACULAR DEGENERATION
     Dates: start: 20030910, end: 20030910

REACTIONS (7)
  - ATROPHY [None]
  - CONDITION AGGRAVATED [None]
  - FIBROSIS [None]
  - METAMORPHOPSIA [None]
  - RETINAL DEGENERATION [None]
  - RETINAL SCAR [None]
  - SCAR [None]
